FAERS Safety Report 9226679 (Version 1)
Quarter: 2013Q2

REPORT INFORMATION
  Report Type: Spontaneous
  Country: US (occurrence: US)
  Receive Date: 20130412
  Receipt Date: 20130412
  Transmission Date: 20140414
  Serious: No
  Sender: FDA-Public Use
  Company Number: US-PFIZER INC-2013111832

PATIENT
  Age: 56 Year
  Sex: Female
  Weight: 90.7 kg

DRUGS (2)
  1. EFFEXOR XR [Suspect]
     Indication: DEPRESSION
     Dosage: 75 MG, 1X/DAY
     Route: 048
     Dates: start: 2004, end: 201208
  2. EFFEXOR XR [Suspect]
     Dosage: UNK
     Dates: start: 201209

REACTIONS (4)
  - Dizziness [Recovered/Resolved]
  - Impaired driving ability [Recovered/Resolved]
  - Impaired work ability [Recovered/Resolved]
  - Nervous system disorder [Recovered/Resolved]
